FAERS Safety Report 14491156 (Version 1)
Quarter: 2018Q1

REPORT INFORMATION
  Report Type: Spontaneous
  Country: US (occurrence: US)
  Receive Date: 20180203
  Receipt Date: 20180203
  Transmission Date: 20180509
  Serious: Yes (Hospitalization)
  Sender: FDA-Public Use
  Company Number: None

PATIENT
  Age: 58 Year
  Sex: Male
  Weight: 90.72 kg

DRUGS (1)
  1. MEMANTINE HYDROCHLORIDE. [Suspect]
     Active Substance: MEMANTINE HYDROCHLORIDE
     Dates: end: 20171214

REACTIONS (8)
  - Asthenia [None]
  - Oedema peripheral [None]
  - Dyspnoea [None]
  - Confusional state [None]
  - Urinary incontinence [None]
  - Pulmonary embolism [None]
  - Dyspnoea exertional [None]
  - Hallucination [None]

NARRATIVE: CASE EVENT DATE: 20171215
